FAERS Safety Report 16134461 (Version 1)
Quarter: 2019Q1

REPORT INFORMATION
  Report Type: Spontaneous
  Country: CA (occurrence: CA)
  Receive Date: 20190329
  Receipt Date: 20190329
  Transmission Date: 20190418
  Serious: Yes (Other)
  Sender: FDA-Public Use
  Company Number: CA-PFIZER INC-2019129258

PATIENT
  Age: 22 Year
  Sex: Male
  Weight: 70 kg

DRUGS (3)
  1. METHYLPREDNISOLONE SODIUM SUCCINATE. [Suspect]
     Active Substance: METHYLPREDNISOLONE SODIUM SUCCINATE
     Dosage: 30 MG, 2X/DAY
     Route: 042
  2. INFLECTRA [Concomitant]
     Active Substance: INFLIXIMAB-DYYB
     Indication: COLITIS ULCERATIVE
     Dosage: 400 MG, CYCLIC (0, 2, 6 WEEKS, THEN EVERY 8 WEEKS)
     Route: 042
     Dates: start: 20190319
  3. MEZAVANT [Concomitant]
     Active Substance: MESALAMINE
     Dosage: 2.4GM TO 4.8GM 1X/DAY
     Route: 048
     Dates: start: 201708

REACTIONS (3)
  - Rectal haemorrhage [Unknown]
  - Frequent bowel movements [Unknown]
  - Drug ineffective [Unknown]
